FAERS Safety Report 8464142-6 (Version None)
Quarter: 2012Q2

REPORT INFORMATION
  Report Type: 
  Country: None (occurrence: None)
  Receive Date: 20120625
  Receipt Date: 20120615
  Transmission Date: 20120825
  Serious: Yes (Other)
  Sender: FDA-Public Use
  Company Number: US-ELI_LILLY_AND_COMPANY-US201206005594

PATIENT
  Sex: Female
  Weight: 105.22 kg

DRUGS (5)
  1. VITAMIN E [Concomitant]
  2. METFORMIN HCL [Concomitant]
     Indication: TYPE 2 DIABETES MELLITUS
     Dosage: 1000 MG, BID
     Route: 048
  3. BYDUREON [Suspect]
     Indication: TYPE 2 DIABETES MELLITUS
     Dosage: 2 MG, WEEKLY (1/W)
     Route: 058
     Dates: start: 20120428, end: 20120615
  4. BYETTA [Suspect]
     Indication: TYPE 2 DIABETES MELLITUS
     Dosage: UNK
     Route: 058
     Dates: start: 20100101, end: 20120427
  5. MULTI-VITAMIN [Concomitant]

REACTIONS (5)
  - ARTHRALGIA [None]
  - LOCAL SWELLING [None]
  - PRURITUS GENERALISED [None]
  - HEADACHE [None]
  - SWELLING FACE [None]
